FAERS Safety Report 5306024-4 (Version None)
Quarter: 2007Q2

REPORT INFORMATION
  Report Type: 
  Country: None (occurrence: None)
  Receive Date: 20070424
  Receipt Date: 20070411
  Transmission Date: 20071010
  Serious: Yes (Death)
  Sender: FDA-Public Use
  Company Number: CL-ROCHE-491441

PATIENT
  Age: 65 Year
  Sex: Female
  Weight: 56 kg

DRUGS (1)
  1. XELODA [Suspect]
     Route: 048
     Dates: start: 20070308

REACTIONS (4)
  - ASTHENIA [None]
  - CARDIOGENIC SHOCK [None]
  - DYSPNOEA [None]
  - EMBOLISM [None]
